FAERS Safety Report 14597432 (Version 1)
Quarter: 2018Q1

REPORT INFORMATION
  Report Type: Spontaneous
  Country: FR (occurrence: FR)
  Receive Date: 20180305
  Receipt Date: 20180305
  Transmission Date: 20180509
  Serious: Yes (Hospitalization, Other)
  Sender: FDA-Public Use
  Company Number: FR-MERCK KGAA-2042936

PATIENT
  Age: 41 Year
  Sex: Female
  Weight: 80 kg

DRUGS (1)
  1. NOVOTHYROX [Suspect]
     Active Substance: LEVOTHYROXINE SODIUM
     Indication: HYPOTHYROIDISM
     Route: 048
     Dates: start: 201703, end: 201712

REACTIONS (11)
  - Disturbance in attention [Not Recovered/Not Resolved]
  - Condition aggravated [Recovering/Resolving]
  - Pain [Recovered/Resolved]
  - Fatigue [Not Recovered/Not Resolved]
  - Weight increased [Recovered/Resolved]
  - Diffuse alopecia [Recovered/Resolved]
  - Sleep disorder [Recovering/Resolving]
  - Blood thyroid stimulating hormone decreased [Recovered/Resolved]
  - Tri-iodothyronine decreased [Recovered/Resolved]
  - Depression [Recovering/Resolving]
  - Thyroxine decreased [Recovered/Resolved]

NARRATIVE: CASE EVENT DATE: 20170315
